FAERS Safety Report 13081480 (Version 1)
Quarter: 2016Q4

REPORT INFORMATION
  Report Type: Spontaneous
  Country: US (occurrence: US)
  Receive Date: 20161230
  Receipt Date: 20161230
  Transmission Date: 20170207
  Serious: Yes (Hospitalization)
  Sender: FDA-Public Use
  Company Number: None

PATIENT
  Age: 46 Year
  Sex: Female
  Weight: 109.3 kg

DRUGS (4)
  1. CYTARABINE. [Suspect]
     Active Substance: CYTARABINE
     Dates: end: 20161204
  2. SODIUM CHLORIDE 0.9% (NS) [Concomitant]
  3. DAUNORUBICIN [Suspect]
     Active Substance: DAUNORUBICIN
     Dates: end: 20161204
  4. ETOPOSIDE (VP-16) [Suspect]
     Active Substance: ETOPOSIDE
     Dates: end: 20161211

REACTIONS (5)
  - Tachycardia [None]
  - Pyrexia [None]
  - Hypoxia [None]
  - Oedema peripheral [None]
  - Tachypnoea [None]

NARRATIVE: CASE EVENT DATE: 20161221
